FAERS Safety Report 14278238 (Version 2)
Quarter: 2018Q1

REPORT INFORMATION
  Report Type: Report from Study
  Country: BR (occurrence: BR)
  Receive Date: 20171212
  Receipt Date: 20180329
  Transmission Date: 20180508
  Serious: Yes (Other)
  Sender: FDA-Public Use
  Company Number: PHHY2017BR182148

PATIENT
  Age: 70 Year
  Sex: Female

DRUGS (1)
  1. FORASEQ [Suspect]
     Active Substance: BUDESONIDE\FORMOTEROL FUMARATE
     Indication: PRODUCT USED FOR UNKNOWN INDICATION
     Dosage: 1 DF, Q12H
     Route: 055
     Dates: start: 2015

REACTIONS (3)
  - Product use issue [Unknown]
  - Diabetes mellitus [Unknown]
  - Device issue [Unknown]
